FAERS Safety Report 13852420 (Version 1)
Quarter: 2017Q3

REPORT INFORMATION
  Report Type: Spontaneous
  Country: IT (occurrence: IT)
  Receive Date: 20170810
  Receipt Date: 20170810
  Transmission Date: 20171127
  Serious: Yes (Death, Hospitalization, Other)
  Sender: FDA-Public Use
  Company Number: IT-CIPLA LTD.-2017IT13653

PATIENT

DRUGS (3)
  1. GEMCITABINE [Suspect]
     Active Substance: GEMCITABINE\GEMCITABINE HYDROCHLORIDE
     Indication: MEDULLOBLASTOMA
     Dosage: 750 MG/M2, EVERY 21 DAYS FOR A TOTAL OF FIVE COURSES
     Route: 065
  2. OXALIPLATIN. [Concomitant]
     Active Substance: OXALIPLATIN
     Indication: MEDULLOBLASTOMA
     Dosage: 75 MG/M2, EVERY 21 DAYS FOR A TOTAL OF FIVE COURSES
     Route: 065
  3. VINORELBINE [Concomitant]
     Active Substance: VINORELBINE\VINORELBINE TARTRATE
     Indication: MEDULLOBLASTOMA
     Dosage: 30 MG/M2, WEEKLY
     Route: 065

REACTIONS (9)
  - Acute respiratory distress syndrome [Fatal]
  - Necrosis [Recovered/Resolved]
  - Haemolytic uraemic syndrome [Recovered/Resolved]
  - Pneumonia [Unknown]
  - Interstitial lung disease [Unknown]
  - Cardiovascular disorder [Fatal]
  - Disease recurrence [Unknown]
  - Acute kidney injury [Recovered/Resolved]
  - Bone marrow failure [Unknown]
